FAERS Safety Report 10750487 (Version 1)
Quarter: 2015Q1

REPORT INFORMATION
  Report Type: Spontaneous
  Country: US (occurrence: US)
  Receive Date: 20150130
  Receipt Date: 20150130
  Transmission Date: 20150721
  Serious: Yes (Other)
  Sender: FDA-Public Use
  Company Number: US-PFIZER INC-2015030075

PATIENT
  Age: 71 Year
  Sex: Female
  Weight: 110 kg

DRUGS (16)
  1. ACETAMINOPHEN. [Concomitant]
     Active Substance: ACETAMINOPHEN
     Dosage: UNK
  2. OXYCONTIN [Concomitant]
     Active Substance: OXYCODONE HYDROCHLORIDE
     Indication: BACK PAIN
     Dosage: 50 MG, 3X/DAY
  3. ADVIL [Suspect]
     Active Substance: IBUPROFEN
     Indication: HEADACHE
     Dosage: 2-4 TABLETS, AS NEEDED
     Route: 048
     Dates: end: 201501
  4. CLOBETASOL [Suspect]
     Active Substance: CLOBETASOL
     Indication: RASH
     Dosage: UNK, AS NEEDED
     Route: 061
  5. ZINC [Concomitant]
     Active Substance: ZINC\ZINC CHLORIDE
     Dosage: UNK
  6. HYDROCHLOROTHIAZIDE. [Concomitant]
     Active Substance: HYDROCHLOROTHIAZIDE
     Indication: OEDEMA PERIPHERAL
     Dosage: 12.5-25MG OCCASIONALLY
  7. ISOSORBIDE ER [Concomitant]
     Indication: HYPERTENSION
     Dosage: 120 MG (AT BEDTIME) AND 30 MG AS NEEDED
  8. TRUE ALOE [Concomitant]
     Dosage: UNK
  9. PROMETHAZINE HYDROCHLORIDE. [Concomitant]
     Active Substance: PROMETHAZINE HYDROCHLORIDE
     Indication: NAUSEA
     Dosage: 25 MG, UNK
  10. NEOSPORIN [Concomitant]
     Active Substance: BACITRACIN ZINC\NEOMYCIN SULFATE\POLYMYXIN B SULFATE
     Indication: PRURITUS
     Dosage: UNK
  11. LOSARTAN [Concomitant]
     Active Substance: LOSARTAN
     Indication: HYPERTENSION
     Dosage: 100 MG, DAILY
  12. AMLODIPINE [Concomitant]
     Active Substance: AMLODIPINE BESYLATE
     Indication: HYPERTENSION
     Dosage: 10 MG, DAILY
  13. VITAMIN D [Concomitant]
     Active Substance: CHOLECALCIFEROL
     Dosage: UNK
  14. MAGNESIUM [Concomitant]
     Active Substance: MAGNESIUM
     Dosage: UNK
  15. NITROSTAT SL [Concomitant]
     Indication: OESOPHAGEAL SPASM
     Dosage: 0.4 MG, 1/150GR
  16. CALCIUM [Concomitant]
     Active Substance: CALCIUM
     Dosage: UNK

REACTIONS (15)
  - Renal vessel disorder [Unknown]
  - Skin fissures [Recovered/Resolved]
  - Malaise [Recovered/Resolved]
  - Joint swelling [Recovered/Resolved]
  - Injection site swelling [Recovered/Resolved]
  - Gastrointestinal disorder [Recovered/Resolved]
  - Injection site reaction [Unknown]
  - Pruritus [Recovered/Resolved]
  - Drug intolerance [Unknown]
  - Skin discolouration [Not Recovered/Not Resolved]
  - Skin exfoliation [Recovered/Resolved]
  - Dry skin [Recovered/Resolved]
  - Rash erythematous [Recovering/Resolving]
  - Blister [Recovered/Resolved]
  - Weight decreased [Recovered/Resolved]

NARRATIVE: CASE EVENT DATE: 201501
